FAERS Safety Report 13370703 (Version 1)
Quarter: 2017Q1

REPORT INFORMATION
  Report Type: Spontaneous
  Country: US (occurrence: US)
  Receive Date: 20170324
  Receipt Date: 20170324
  Transmission Date: 20170429
  Serious: No
  Sender: FDA-Public Use
  Company Number: US-BAYER-2017-057258

PATIENT
  Age: 79 Year
  Sex: Male

DRUGS (1)
  1. BETASERON [Suspect]
     Active Substance: INTERFERON BETA-1B
     Indication: MULTIPLE SCLEROSIS
     Dosage: 0.2 MG, QOD
     Route: 058

REACTIONS (2)
  - Injection site abscess [None]
  - Injection site reaction [None]

NARRATIVE: CASE EVENT DATE: 201701
